FAERS Safety Report 5501206-0 (Version None)
Quarter: 2007Q4

REPORT INFORMATION
  Report Type: 
  Country: None (occurrence: None)
  Receive Date: 20071029
  Receipt Date: 20071017
  Transmission Date: 20080405
  Serious: Yes (Hospitalization)
  Sender: FDA-Public Use
  Company Number: ES-PFIZER INC-2007084941

PATIENT
  Sex: Female
  Weight: 53 kg

DRUGS (9)
  1. MARAVIROC [Suspect]
     Indication: HIV INFECTION
     Route: 048
     Dates: start: 20050701, end: 20071009
  2. VALACYCLOVIR HCL [Concomitant]
     Route: 048
  3. KALETRA [Concomitant]
     Route: 048
     Dates: start: 20020523, end: 20071012
  4. STAVUDINE [Concomitant]
     Route: 048
     Dates: start: 20050630, end: 20071012
  5. TRUVADA [Concomitant]
     Route: 048
  6. OMEPRAZOLE [Concomitant]
     Route: 048
  7. TENOFOVIR [Concomitant]
     Route: 048
     Dates: start: 20030205, end: 20071012
  8. EMTRICITABINE [Concomitant]
     Route: 048
     Dates: start: 20050630, end: 20071012
  9. VALGANCICLOVIR HCL [Concomitant]
     Route: 048
     Dates: start: 20000115

REACTIONS (1)
  - DEMYELINATION [None]
